FAERS Safety Report 6084871-1 (Version None)
Quarter: 2009Q1

REPORT INFORMATION
  Report Type: 
  Country: None (occurrence: None)
  Receive Date: 20090220
  Receipt Date: 20090214
  Transmission Date: 20090719
  Serious: Yes (Life-Threatening)
  Sender: FDA-Public Use
  Company Number: FR-RANBAXY-2009RR-21840

PATIENT
  Age: 28 Year
  Sex: Female

DRUGS (2)
  1. ACETAMINOPHEN [Suspect]
     Indication: PYREXIA
     Dosage: 1 G, UNK
     Route: 048
     Dates: start: 19991101
  2. ACETAMINOPHEN [Suspect]
     Dosage: 1 G, UNK
     Route: 048

REACTIONS (5)
  - ANAPHYLACTIC REACTION [None]
  - CHEST DISCOMFORT [None]
  - HYPOTENSION [None]
  - LOSS OF CONSCIOUSNESS [None]
  - URTICARIA [None]
